FAERS Safety Report 7054484-3 (Version None)
Quarter: 2010Q4

REPORT INFORMATION
  Report Type: 
  Country: None (occurrence: None)
  Receive Date: 20101020
  Receipt Date: 20101014
  Transmission Date: 20110411
  Serious: Yes (Other)
  Sender: FDA-Public Use
  Company Number: ES-PFIZER INC-2010111435

PATIENT
  Age: 50 Year
  Sex: Female

DRUGS (5)
  1. GABAPENTIN [Suspect]
     Indication: ANXIETY
     Dosage: 1200 MG, DAILY
     Dates: start: 20100401
  2. GABAPENTIN [Interacting]
     Dosage: 300 MG, 2X/DAY
     Dates: start: 20100601, end: 20100710
  3. ATARAX [Interacting]
     Dosage: UNK
     Dates: start: 20100701
  4. DOBUPAL [Concomitant]
     Dosage: 37.5 MG, UNK
     Dates: start: 20100601
  5. CLOBETASOL [Concomitant]
     Dosage: UNK

REACTIONS (4)
  - DRUG INTERACTION [None]
  - GAIT DISTURBANCE [None]
  - HALLUCINATIONS, MIXED [None]
  - SEDATION [None]
